FAERS Safety Report 23296469 (Version 1)
Quarter: 2023Q4

REPORT INFORMATION
  Report Type: Spontaneous
  Country: CN (occurrence: CN)
  Receive Date: 20231214
  Receipt Date: 20231214
  Transmission Date: 20240109
  Serious: Yes (Hospitalization)
  Sender: FDA-Public Use
  Company Number: CN-BAYER-2023A178610

PATIENT
  Age: 73 Year
  Sex: Male
  Weight: 56 kg

DRUGS (1)
  1. CIPROFLOXACIN [Suspect]
     Active Substance: CIPROFLOXACIN
     Indication: Sepsis
     Dosage: 0.4 G, BID. DROP RATE: 3.5ML/MIN
     Route: 041
     Dates: start: 20231109, end: 20231126

REACTIONS (3)
  - Depressed mood [Recovering/Resolving]
  - Decreased appetite [Recovering/Resolving]
  - Off label use [None]

NARRATIVE: CASE EVENT DATE: 20231109
